FAERS Safety Report 17723621 (Version 1)
Quarter: 2020Q2

REPORT INFORMATION
  Report Type: Spontaneous
  Country: US (occurrence: US)
  Receive Date: 20200429
  Receipt Date: 20200429
  Transmission Date: 20200714
  Serious: Yes (Hospitalization)
  Sender: FDA-Public Use
  Company Number: None

PATIENT
  Age: 3 Year
  Sex: Male
  Weight: 16.7 kg

DRUGS (1)
  1. CHOCOLATE FLAVORED SENNA [Suspect]
     Active Substance: SENNOSIDES
     Dates: start: 20200428

REACTIONS (3)
  - Anal blister [None]
  - Anal ulcer [None]
  - Diarrhoea [None]

NARRATIVE: CASE EVENT DATE: 20200428
